FAERS Safety Report 20659200 (Version 1)
Quarter: 2022Q1

REPORT INFORMATION
  Report Type: Spontaneous
  Country: US (occurrence: None)
  Receive Date: 20220331
  Receipt Date: 20220331
  Transmission Date: 20220424
  Serious: No
  Sender: FDA-Public Use
  Company Number: None

PATIENT
  Age: 78 Year
  Sex: Female
  Weight: 46.72 kg

DRUGS (21)
  1. CAPECITABINE [Suspect]
     Active Substance: CAPECITABINE
     Indication: Breast cancer female
     Dosage: FREQUENCY : TWICE A DAY;?
     Route: 048
     Dates: start: 202110, end: 20220331
  2. ALPA LIPOIC ACID [Concomitant]
  3. ARMOUR THYROID [Concomitant]
     Active Substance: THYROID, PORCINE
  4. B12 FAST DISSOLVE [Concomitant]
  5. B6 NATURAL [Concomitant]
  6. BIOTIN 5000 [Concomitant]
  7. CANNABIS SATIVA SUBSP. INDICA TOP [Concomitant]
     Active Substance: CANNABIS SATIVA SUBSP. INDICA TOP
  8. COENZYME Q10 [Concomitant]
     Active Substance: DIETARY SUPPLEMENT\UBIDECARENONE
  9. PRASTERONE [Concomitant]
     Active Substance: PRASTERONE
  10. ELIQUIS [Concomitant]
     Active Substance: APIXABAN
  11. FLAX [Concomitant]
  12. L-LYSINE HCL [Concomitant]
  13. MAGNESIUM GLUCONATE [Concomitant]
     Active Substance: MAGNESIUM GLUCONATE
  14. MELATONIN ER [Concomitant]
  15. DIETARY SUPPLEMENT\HERBALS\MILK THISTLE [Concomitant]
     Active Substance: DIETARY SUPPLEMENT\HERBALS\MILK THISTLE
  16. NALTREXONE [Concomitant]
     Active Substance: NALTREXONE
  17. OCCUVITE [Concomitant]
  18. OSTEO-ELITE [Concomitant]
  19. PROBIOTIC BLEND [Concomitant]
  20. VITAMIN C [Concomitant]
     Active Substance: ASCORBIC ACID
  21. VITAMIN E COMPLETE [Concomitant]

REACTIONS (1)
  - Disease progression [None]
